FAERS Safety Report 25680753 (Version 1)
Quarter: 2025Q3

REPORT INFORMATION
  Report Type: Spontaneous
  Country: US (occurrence: US)
  Receive Date: 20250814
  Receipt Date: 20250814
  Transmission Date: 20251021
  Serious: No
  Sender: ROCHE
  Company Number: US-ROCHE-10000361766

PATIENT
  Age: 38 Year

DRUGS (1)
  1. OCREVUS [Suspect]
     Active Substance: OCRELIZUMAB
     Indication: Product used for unknown indication
     Route: 065
     Dates: start: 202305

REACTIONS (12)
  - Brain fog [Unknown]
  - Anxiety [Unknown]
  - Head discomfort [Unknown]
  - Sleep disorder [Unknown]
  - Disturbance in attention [Unknown]
  - Memory impairment [Unknown]
  - Mental impairment [Unknown]
  - Fatigue [Unknown]
  - Asthenia [Unknown]
  - Dizziness [Unknown]
  - Syncope [Unknown]
  - Myoclonus [Unknown]
